FAERS Safety Report 9822116 (Version 2)
Quarter: 2014Q1

REPORT INFORMATION
  Report Type: Spontaneous
  Country: US (occurrence: US)
  Receive Date: 20140116
  Receipt Date: 20140212
  Transmission Date: 20141002
  Serious: Yes (Hospitalization)
  Sender: FDA-Public Use
  Company Number: US-GLAXOSMITHKLINE-A1055994A

PATIENT
  Age: 62 Year
  Sex: Female

DRUGS (12)
  1. VOTRIENT [Suspect]
     Indication: SARCOMA
     Dosage: 800MG PER DAY
     Route: 048
     Dates: start: 20131105, end: 20131108
  2. FLUOXETINE [Suspect]
     Indication: PRODUCT USED FOR UNKNOWN INDICATION
     Route: 065
  3. LOSARTAN [Concomitant]
  4. ATENOLOL [Concomitant]
  5. ASPIRIN [Concomitant]
  6. PRAVASTATIN [Concomitant]
  7. BENZTROPINE MESYLATE [Concomitant]
  8. AMLODIPINE [Concomitant]
  9. REQUIP [Concomitant]
  10. FEOSOL [Concomitant]
  11. FLUPHENAZINE [Concomitant]
  12. VITAMIN B12 [Concomitant]

REACTIONS (23)
  - Depressed level of consciousness [Recovered/Resolved with Sequelae]
  - Investigation [Recovered/Resolved with Sequelae]
  - Oxygen supplementation [Not Recovered/Not Resolved]
  - Intensive care [Unknown]
  - Transfusion [Unknown]
  - Skin atrophy [Not Recovered/Not Resolved]
  - Weight decreased [Not Recovered/Not Resolved]
  - Nausea [Not Recovered/Not Resolved]
  - Electrolyte imbalance [Not Recovered/Not Resolved]
  - Heart rate increased [Not Recovered/Not Resolved]
  - Fatigue [Not Recovered/Not Resolved]
  - Vomiting [Unknown]
  - Hypomagnesaemia [Unknown]
  - Hypoglycaemia [Unknown]
  - Drug interaction [Unknown]
  - Dysstasia [Unknown]
  - Heart rate irregular [Unknown]
  - Chest pain [Not Recovered/Not Resolved]
  - Decreased appetite [Not Recovered/Not Resolved]
  - Weight decreased [Not Recovered/Not Resolved]
  - Ill-defined disorder [Not Recovered/Not Resolved]
  - Wheelchair user [Not Recovered/Not Resolved]
  - Heart rate [Not Recovered/Not Resolved]
